FAERS Safety Report 20159133 (Version 4)
Quarter: 2022Q1

REPORT INFORMATION
  Report Type: Spontaneous
  Country: JP (occurrence: JP)
  Receive Date: 20211208
  Receipt Date: 20220125
  Transmission Date: 20220423
  Serious: Yes (Hospitalization, Other)
  Sender: FDA-Public Use
  Company Number: JP-RECORDATI-2021004861

PATIENT

DRUGS (27)
  1. SIGNIFOR LAR [Suspect]
     Active Substance: PASIREOTIDE PAMOATE
     Indication: Pituitary-dependent Cushing^s syndrome
     Dosage: 10 MILLIGRAM, QM
     Route: 030
     Dates: start: 20210621, end: 20210721
  2. POTASSIUM CHLORIDE [Concomitant]
     Active Substance: POTASSIUM CHLORIDE
     Indication: Product used for unknown indication
     Dosage: 4800 MILLIGRAM
     Dates: start: 20210422, end: 20210422
  3. POTASSIUM CHLORIDE [Concomitant]
     Active Substance: POTASSIUM CHLORIDE
     Dosage: 7200 MILLIGRAM
     Dates: start: 20210423, end: 20210506
  4. POTASSIUM CHLORIDE [Concomitant]
     Active Substance: POTASSIUM CHLORIDE
     Dosage: 4800 MILLIGRAM
     Dates: start: 20210507, end: 20210512
  5. POTASSIUM CHLORIDE [Concomitant]
     Active Substance: POTASSIUM CHLORIDE
     Dosage: 2400 MILLIGRAM
     Dates: start: 20210513, end: 20210517
  6. POTASSIUM CHLORIDE [Concomitant]
     Active Substance: POTASSIUM CHLORIDE
     Dosage: 3600 MILLIGRAM
     Dates: start: 20210518, end: 20210519
  7. POTASSIUM CHLORIDE [Concomitant]
     Active Substance: POTASSIUM CHLORIDE
     Dosage: 4200 MILLIGRAM
     Dates: start: 20210520, end: 20210805
  8. METOPIRON [METYRAPONE] [Concomitant]
     Indication: Product used for unknown indication
     Dosage: 2000 MILLIGRAM
     Dates: start: 20210507, end: 20210525
  9. METOPIRON [METYRAPONE] [Concomitant]
     Dosage: 2250 MILLIGRAM
     Dates: start: 20210526, end: 20210603
  10. METOPIRON [METYRAPONE] [Concomitant]
     Dosage: 2500 MILLIGRAM
     Dates: start: 20210604, end: 20210720
  11. METOPIRON [METYRAPONE] [Concomitant]
     Dosage: 2000 MILLIGRAM
     Dates: start: 20210721, end: 20210805
  12. SPIRONOLACTONE [Concomitant]
     Active Substance: SPIRONOLACTONE
     Indication: Product used for unknown indication
     Dosage: 25 MILLIGRAM
     Dates: start: 20210629, end: 20210805
  13. LANSOPRAZOLE [Concomitant]
     Active Substance: LANSOPRAZOLE
     Indication: Product used for unknown indication
     Dosage: 15 MILLIGRAM
     Dates: start: 20210624, end: 20210830
  14. XARELTO [Concomitant]
     Active Substance: RIVAROXABAN
     Indication: Product used for unknown indication
     Dosage: 30 MILLIGRAM
     Dates: start: 20210430, end: 20210515
  15. XARELTO [Concomitant]
     Active Substance: RIVAROXABAN
     Dosage: 15 MILLIGRAM
     Dates: start: 20210516, end: 20210727
  16. AMLODIPINE BESYLATE [Concomitant]
     Active Substance: AMLODIPINE BESYLATE
     Indication: Product used for unknown indication
     Dosage: 5 MILLIGRAM
     Dates: start: 20210427, end: 20210429
  17. AMLODIPINE BESYLATE [Concomitant]
     Active Substance: AMLODIPINE BESYLATE
     Dosage: 10 MILLIGRAM
     Dates: start: 20210430, end: 20210509
  18. AMLODIPINE BESYLATE [Concomitant]
     Active Substance: AMLODIPINE BESYLATE
     Dosage: 5 MILLIGRAM
     Dates: start: 20210510, end: 20210525
  19. AMLODIPINE BESYLATE [Concomitant]
     Active Substance: AMLODIPINE BESYLATE
     Dosage: 2.5 MILLIGRAM
     Dates: start: 20210526, end: 20210726
  20. CORTRIL [Concomitant]
     Active Substance: HYDROCORTISONE
     Indication: Product used for unknown indication
     Dosage: 60 MILLIGRAM
     Dates: start: 20210507, end: 20210507
  21. CORTRIL [Concomitant]
     Active Substance: HYDROCORTISONE
     Dosage: 30 MILLIGRAM
     Dates: start: 20210508, end: 20210510
  22. CORTRIL [Concomitant]
     Active Substance: HYDROCORTISONE
     Dosage: 20 MILLIGRAM
     Dates: start: 20210511, end: 20210602
  23. CORTRIL [Concomitant]
     Active Substance: HYDROCORTISONE
     Dosage: 15 MILLIGRAM
     Dates: start: 20210603, end: 20210623
  24. CORTRIL [Concomitant]
     Active Substance: HYDROCORTISONE
     Dosage: 10 MILLIGRAM
     Dates: start: 20210624, end: 20210701
  25. CORTRIL [Concomitant]
     Active Substance: HYDROCORTISONE
     Dosage: 15 MILLIGRAM
     Dates: start: 20210721, end: 20210805
  26. LEVOTHYROXINE SODIUM [Concomitant]
     Active Substance: LEVOTHYROXINE SODIUM
     Indication: Product used for unknown indication
  27. DESMOPRESSIN ACETATE [Concomitant]
     Active Substance: DESMOPRESSIN ACETATE
     Indication: Product used for unknown indication

REACTIONS (1)
  - Pituitary apoplexy [Recovering/Resolving]

NARRATIVE: CASE EVENT DATE: 20210723
